FAERS Safety Report 8356178-0 (Version None)
Quarter: 2012Q2

REPORT INFORMATION
  Report Type: 
  Country: None (occurrence: None)
  Receive Date: 20120514
  Receipt Date: 20120228
  Transmission Date: 20120825
  Serious: Yes (Death)
  Sender: FDA-Public Use
  Company Number: US-ASTELLAS-2012US001684

PATIENT
  Sex: Male
  Weight: 101 kg

DRUGS (9)
  1. AVODART [Concomitant]
     Indication: BENIGN PROSTATIC HYPERPLASIA
     Dosage: 0.5 MG, UNKNOWN/D
     Route: 048
  2. NABUMETONE [Suspect]
     Indication: OSTEOARTHRITIS
     Dosage: 500 MG, UNKNOWN/D
     Route: 048
  3. VENTOLIN HFA [Concomitant]
     Indication: EMPHYSEMA
     Dosage: 2 PUFFS, UID/QD
     Route: 065
  4. NSAID'S [Concomitant]
     Indication: PRODUCT USED FOR UNKNOWN INDICATION
     Dosage: UNK
     Route: 065
  5. SINGULAIR [Concomitant]
     Indication: EMPHYSEMA
     Dosage: 10 MG, UNKNOWN/D
     Route: 048
  6. TARCEVA [Suspect]
     Indication: NON-SMALL CELL LUNG CANCER
     Dosage: 150 MG, UID/QD
     Route: 048
     Dates: start: 20111118, end: 20111205
  7. COUMADIN [Suspect]
     Indication: DEEP VEIN THROMBOSIS
     Dosage: 5 MG, UNKNOWN/D
     Route: 048
  8. PREDNISONE TAB [Suspect]
     Indication: ADRENAL INSUFFICIENCY
     Dosage: 10 MG, UNKNOWN/D
     Route: 048
  9. TAGAMET HB [Concomitant]
     Indication: PRODUCT USED FOR UNKNOWN INDICATION
     Dosage: 2 DF, BID
     Route: 048

REACTIONS (3)
  - RESPIRATORY FAILURE [None]
  - GASTROINTESTINAL HAEMORRHAGE [None]
  - ANAEMIA [None]
